FAERS Safety Report 6243717-9 (Version None)
Quarter: 2009Q2

REPORT INFORMATION
  Report Type: 
  Country: None (occurrence: None)
  Receive Date: 20090618
  Receipt Date: 20080610
  Transmission Date: 20091009
  Serious: Yes (Hospitalization)
  Sender: FDA-Public Use
  Company Number: WAES 0806USA03711

PATIENT

DRUGS (4)
  1. COZAAR [Suspect]
     Dosage: PO
     Route: 048
  2. LASIX [Suspect]
  3. NONSTEROIDAL ANTI-INFLAMMATORY DRUG (UNSPECIFIED) UNK [Suspect]
  4. ALDACTONE [Suspect]

REACTIONS (1)
  - RENAL FAILURE ACUTE [None]
